FAERS Safety Report 11965638 (Version 1)
Quarter: 2016Q1

REPORT INFORMATION
  Report Type: Spontaneous
  Country: US (occurrence: US)
  Receive Date: 20160127
  Receipt Date: 20160127
  Transmission Date: 20160526
  Serious: Yes (Other)
  Sender: FDA-Public Use
  Company Number: US-SUN PHARMACEUTICAL INDUSTRIES LTD-2016US-110137

PATIENT
  Sex: Male

DRUGS (1)
  1. ACETAMINOPHEN. [Suspect]
     Active Substance: ACETAMINOPHEN
     Indication: ARTHRITIS
     Dosage: 2 DF, TID (2 TABLETS EVERY 8 HOURS WITH WATER)
     Route: 048

REACTIONS (3)
  - Therapeutic response decreased [Unknown]
  - Lower limb fracture [Unknown]
  - Abasia [Unknown]
